FAERS Safety Report 4653577-5 (Version None)
Quarter: 2005Q2

REPORT INFORMATION
  Report Type: 
  Country: None (occurrence: None)
  Receive Date: 20050504
  Receipt Date: 20050425
  Transmission Date: 20051028
  Serious: Yes (Death)
  Sender: FDA-Public Use
  Company Number: GXKR2005GB00894

PATIENT
  Age: 64 Year
  Sex: Female

DRUGS (9)
  1. AMOXICILLIN [Suspect]
  2. SALBUTAMOL (NGX) (SALBUTAMOL) [Suspect]
     Dosage: 5 MG, QD,
  3. ATROVENT [Suspect]
     Indication: CHRONIC OBSTRUCTIVE PULMONARY DISEASE
     Dosage: 2 ML, QD
  4. PREDNISONE [Suspect]
     Dosage: 5 MG, QD, ORAL
     Route: 048
  5. VENTODISKS (SALBUTAMOL SULFATE) [Suspect]
     Dosage: 400 UG, QID,
  6. IBUPROFEN [Suspect]
     Dosage: 200 MG, TID, ORAL
     Route: 048
  7. FLUTICASONE W/SALMETEROL (FLUTICASONE, SALMETEROL) [Suspect]
     Dosage: (25/125) 2 PUFFS, BID, RESPIRATORY
     Route: 055
  8. PHYLLOCONTIN [Suspect]
     Dosage: 225 MG, BID,
  9. OXYGEN (OXYGEN) [Suspect]

REACTIONS (2)
  - BRONCHOPNEUMONIA [None]
  - EMPHYSEMA [None]
